FAERS Safety Report 10378497 (Version 1)
Quarter: 2014Q3

REPORT INFORMATION
  Report Type: Spontaneous
  Country: US (occurrence: None)
  Receive Date: 20140811
  Receipt Date: 20140811
  Transmission Date: 20150326
  Serious: Yes (Disabling)
  Sender: FDA-Public Use
  Company Number: None

PATIENT
  Age: 53 Year
  Sex: Male
  Weight: 99.79 kg

DRUGS (1)
  1. CELEBREX [Suspect]
     Active Substance: CELECOXIB
     Indication: PAIN MANAGEMENT
     Dosage: 1PILL ONCE DAILY TAKEN BY MOUTH
     Route: 048
     Dates: start: 20140623, end: 20140727

REACTIONS (2)
  - Asthenia [None]
  - Rhabdomyolysis [None]

NARRATIVE: CASE EVENT DATE: 20140727
